FAERS Safety Report 4752872-9 (Version None)
Quarter: 2005Q3

REPORT INFORMATION
  Report Type: 
  Country: None (occurrence: None)
  Receive Date: 20050823
  Receipt Date: 20050818
  Transmission Date: 20060218
  Serious: Yes (Other)
  Sender: FDA-Public Use
  Company Number: 214678

PATIENT
  Sex: Female

DRUGS (1)
  1. XOLAIR [Suspect]
     Indication: DRUG USE FOR UNKNOWN INDICATION
     Dates: end: 20041001

REACTIONS (3)
  - EOSINOPHILIA MYALGIA SYNDROME [None]
  - MYOSITIS-LIKE SYNDROME [None]
  - SCLERODERMA [None]
